FAERS Safety Report 5791889-2 (Version None)
Quarter: 2008Q2

REPORT INFORMATION
  Report Type: 
  Country: None (occurrence: None)
  Receive Date: 20080618
  Receipt Date: 20080321
  Transmission Date: 20081010
  Serious: Yes (Hospitalization, Other)
  Sender: FDA-Public Use
  Company Number: 200811833US

PATIENT
  Age: 59 Year
  Sex: Male

DRUGS (15)
  1. LANTUS [Suspect]
     Indication: TYPE 2 DIABETES MELLITUS
     Dosage: 38 U QAM INJ
     Dates: start: 20050101
  2. OPTICLIK BLUE [Suspect]
     Indication: TYPE 2 DIABETES MELLITUS
     Dates: start: 20050101
  3. HUMALOG [Concomitant]
  4. PARACETAMOL, HYDROCODONE BITARTRATE (VICODIN) [Concomitant]
  5. ENALAPRIL MALEATE [Concomitant]
  6. BUPROPION (WELLBUTRIN /00700501/) [Concomitant]
  7. XANAX [Concomitant]
  8. PROCHLORPERAPRINE HYDROCHLORIDE [Concomitant]
  9. CYCLOBENZAPRINE HYDROCHLORIDE (FLEXERIL  /00428402/) [Concomitant]
  10. DIPHENHYDRAMINE HYDROCHLORIDE (BENADRYL /00000402/) [Concomitant]
  11. ALBUTEROL [Concomitant]
  12. SALBUTAMOL, IPRATROPIUM BROMIDE (COMBIVENT /01033501/) [Concomitant]
  13. KETOFIFEN [Concomitant]
  14. CALCIUM [Concomitant]
  15. MAXZIDE [Concomitant]

REACTIONS (4)
  - BLOOD GLUCOSE FLUCTUATION [None]
  - HYPOGLYCAEMIC COMA [None]
  - HYPOGLYCAEMIC SEIZURE [None]
  - NERVOUSNESS [None]
